FAERS Safety Report 5374820-3 (Version None)
Quarter: 2007Q2

REPORT INFORMATION
  Report Type: 
  Country: None (occurrence: None)
  Receive Date: 20070629
  Receipt Date: 20070627
  Transmission Date: 20071010
  Serious: Yes (Other)
  Sender: FDA-Public Use
  Company Number: A0660500A

PATIENT
  Age: 13 Year
  Sex: Female

DRUGS (6)
  1. AMOXIL [Suspect]
     Indication: DRUG USE FOR UNKNOWN INDICATION
     Dosage: 500MG THREE TIMES PER DAY
     Route: 048
  2. SEPTRA [Suspect]
     Indication: DRUG USE FOR UNKNOWN INDICATION
     Route: 048
  3. AZITHROMYCIN [Suspect]
     Indication: DRUG USE FOR UNKNOWN INDICATION
     Route: 065
  4. CLARITHROMYCIN [Suspect]
     Indication: DRUG USE FOR UNKNOWN INDICATION
     Dosage: 500MG TWICE PER DAY
     Route: 065
  5. ERYTHROMYCIN [Suspect]
     Indication: DRUG USE FOR UNKNOWN INDICATION
     Dosage: 333MG THREE TIMES PER DAY
     Route: 065
  6. ROCEPHIN [Suspect]
     Indication: DRUG USE FOR UNKNOWN INDICATION
     Route: 065

REACTIONS (9)
  - CONJUNCTIVITIS [None]
  - DEPRESSED LEVEL OF CONSCIOUSNESS [None]
  - DERMATITIS BULLOUS [None]
  - DYSPNOEA [None]
  - MUCOSAL ULCERATION [None]
  - PAIN [None]
  - PYREXIA [None]
  - RASH MACULO-PAPULAR [None]
  - SKIN EXFOLIATION [None]
